FAERS Safety Report 16804472 (Version 2)
Quarter: 2019Q3

REPORT INFORMATION
  Report Type: Spontaneous
  Country: US (occurrence: US)
  Receive Date: 20190913
  Receipt Date: 20190919
  Transmission Date: 20191005
  Serious: Yes (Other)
  Sender: FDA-Public Use
  Company Number: US-PFIZER INC-2019393171

PATIENT
  Age: 54 Year
  Sex: Female
  Weight: 64.4 kg

DRUGS (4)
  1. FASLODEX [Suspect]
     Active Substance: FULVESTRANT
     Indication: BREAST CANCER METASTATIC
     Dosage: 250 MG, UNK (ADMINISTERED IN EACH FLANK/BUTTOCK EVERY 28 DAYS)
     Dates: start: 201902, end: 20190909
  2. IBRANCE [Suspect]
     Active Substance: PALBOCICLIB
     Indication: BREAST CANCER METASTATIC
     Dosage: 125 MG, UNK
     Dates: start: 20190228, end: 2019
  3. IBRANCE [Suspect]
     Active Substance: PALBOCICLIB
     Dosage: 100 MG, UNK
     Dates: start: 201906, end: 2019
  4. IBRANCE [Suspect]
     Active Substance: PALBOCICLIB
     Dosage: 75 MG, CYCLIC (21 DAYS AND 7 DAYS OFF)
     Route: 048
     Dates: start: 2019, end: 20190909

REACTIONS (9)
  - Capillary disorder [Unknown]
  - Red blood cell count decreased [Recovering/Resolving]
  - Neuropathy peripheral [Unknown]
  - Burning sensation [Recovering/Resolving]
  - Neoplasm recurrence [Unknown]
  - Malaise [Unknown]
  - Eye swelling [Recovering/Resolving]
  - White blood cell count decreased [Recovering/Resolving]
  - Autoimmune disorder [Unknown]

NARRATIVE: CASE EVENT DATE: 2019
